FAERS Safety Report 21325522 (Version 1)
Quarter: 2022Q3

REPORT INFORMATION
  Report Type: Report from Study
  Country: US (occurrence: US)
  Receive Date: 20220912
  Receipt Date: 20220912
  Transmission Date: 20221027
  Serious: Yes (Other)
  Sender: FDA-Public Use
  Company Number: US-ABBVIE-22K-163-4532341-00

PATIENT
  Age: 39 Year
  Sex: Female

DRUGS (1)
  1. MAVYRET [Suspect]
     Active Substance: GLECAPREVIR\PIBRENTASVIR
     Indication: Hepatitis C
     Dosage: 100/40 MG
     Route: 048

REACTIONS (4)
  - Surgery [Unknown]
  - SARS-CoV-2 test positive [Unknown]
  - Ear pain [Unknown]
  - Headache [Unknown]

NARRATIVE: CASE EVENT DATE: 20220902
